FAERS Safety Report 25566820 (Version 1)
Quarter: 2025Q3

REPORT INFORMATION
  Report Type: Spontaneous
  Country: US (occurrence: None)
  Receive Date: 20250715
  Receipt Date: 20250715
  Transmission Date: 20251020
  Serious: Yes (Other)
  Sender: FDA-CTU
  Company Number: None

PATIENT
  Age: 59 Year
  Sex: Female
  Weight: 49.5 kg

DRUGS (6)
  1. PROGESTERONE [Suspect]
     Active Substance: PROGESTERONE
     Indication: Hormone replacement therapy
     Dosage: OTHER QUANTITY : 1 CAPSULE(S);?FREQUENCY : AT BEDTIME;?
     Route: 048
     Dates: start: 20230203, end: 20240630
  2. ESTRADIOL [Suspect]
     Active Substance: ESTRADIOL
     Indication: Hormone replacement therapy
     Route: 062
     Dates: start: 20230203, end: 20240806
  3. Vivelle-DOT patch [Concomitant]
  4. PROMETRIUM [Concomitant]
     Active Substance: PROGESTERONE
  5. CELEBREX [Concomitant]
     Active Substance: CELECOXIB
  6. VITAMIN D3 [Concomitant]
     Active Substance: CHOLECALCIFEROL

REACTIONS (4)
  - Rash pruritic [None]
  - Rash [None]
  - Rash [None]
  - Cheilitis [None]

NARRATIVE: CASE EVENT DATE: 20230203
